FAERS Safety Report 7588160-5 (Version None)
Quarter: 2011Q3

REPORT INFORMATION
  Report Type: 
  Country: None (occurrence: None)
  Receive Date: 20110705
  Receipt Date: 20110613
  Transmission Date: 20111222
  Serious: Yes (Life-Threatening, Hospitalization, Other)
  Sender: FDA-Public Use
  Company Number: US-BAYER-201029919NA

PATIENT
  Age: 32 Year
  Sex: Female
  Weight: 102.49 kg

DRUGS (5)
  1. CHANTIX [Concomitant]
     Indication: TOBACCO ABUSE
     Dosage: 1 MG, BID
  2. PERCOCET [Concomitant]
     Dosage: UNK UNK, QID
     Route: 048
  3. VALIUM [Concomitant]
     Dosage: 100 MG, PRN
     Route: 048
  4. ACCUTANE [Concomitant]
     Indication: ACNE
     Route: 048
  5. YAZ [Suspect]
     Indication: ACNE
     Dosage: UNK UNK, QD
     Route: 048
     Dates: start: 20070601, end: 20090201

REACTIONS (5)
  - BILE DUCT STONE [None]
  - CHOLELITHIASIS [None]
  - GALLBLADDER NON-FUNCTIONING [None]
  - CHOLECYSTITIS ACUTE [None]
  - PAIN [None]
